FAERS Safety Report 6730989-7 (Version None)
Quarter: 2010Q2

REPORT INFORMATION
  Report Type: 
  Country: None (occurrence: None)
  Receive Date: 20100518
  Receipt Date: 20100507
  Transmission Date: 20101027
  Serious: Yes (Hospitalization)
  Sender: FDA-Public Use
  Company Number: FR-WYE-H15029010

PATIENT
  Age: 49 Year
  Sex: Male

DRUGS (3)
  1. VENLAFAXINE HYDROCHLORIDE [Suspect]
     Indication: MAJOR DEPRESSION
     Dates: start: 20060301, end: 20060601
  2. VENLAFAXINE HYDROCHLORIDE [Suspect]
     Dates: start: 20060601, end: 20061201
  3. INDAPAMIDE [Concomitant]
     Indication: HYPERTENSION
     Dosage: UNKNOWN

REACTIONS (2)
  - CARDIOGENIC SHOCK [None]
  - CARDIOMYOPATHY [None]
